FAERS Safety Report 7699087-2 (Version None)
Quarter: 2011Q3

REPORT INFORMATION
  Report Type: 
  Country: None (occurrence: None)
  Receive Date: 20110819
  Receipt Date: 20110816
  Transmission Date: 20111222
  Serious: Yes (Other)
  Sender: FDA-Public Use
  Company Number: CN-ABBOTT-11P-035-0846999-00

PATIENT
  Age: 32 Year
  Sex: Male

DRUGS (1)
  1. DEPAKENE [Suspect]
     Indication: EPILEPSY
     Dosage: EXTENDED RELASE
     Route: 048
     Dates: start: 20110701

REACTIONS (5)
  - EPISTAXIS [None]
  - SYNCOPE [None]
  - EYE HAEMORRHAGE [None]
  - LOSS OF CONSCIOUSNESS [None]
  - CONTUSION [None]
